FAERS Safety Report 23042450 (Version 2)
Quarter: 2023Q4

REPORT INFORMATION
  Report Type: Spontaneous
  Country: CH (occurrence: CH)
  Receive Date: 20231008
  Receipt Date: 20231208
  Transmission Date: 20240109
  Serious: Yes (Hospitalization)
  Sender: FDA-Public Use
  Company Number: CH-BAUSCHBL-2023BNL009202

PATIENT
  Age: 71 Year
  Sex: Female

DRUGS (9)
  1. TIMOLOL [Suspect]
     Active Substance: TIMOLOL
     Indication: Ocular hypertension
     Dosage: 1 DROP IN THE MORNING
     Route: 047
  2. DEVICE [Suspect]
     Active Substance: DEVICE
     Indication: Ocular hypertension
     Route: 047
  3. BRINZOLAMIDE [Suspect]
     Active Substance: BRINZOLAMIDE
     Indication: Ocular hypertension
     Dosage: TWO DROPS IN THE MORNING
     Route: 047
  4. CANDESARTAN [Concomitant]
     Active Substance: CANDESARTAN
     Indication: Hypertension
  5. ATORVASTATIN [Concomitant]
     Active Substance: ATORVASTATIN
     Indication: Hyperlipidaemia
  6. ASPIRIN [Concomitant]
     Active Substance: ASPIRIN
     Indication: Cardiovascular event prophylaxis
  7. PANTOPRAZOLE [Concomitant]
     Active Substance: PANTOPRAZOLE
     Indication: Prophylaxis against gastrointestinal ulcer
  8. IBUPROFEN [Concomitant]
     Active Substance: IBUPROFEN
     Indication: Pain
  9. IBUPROFEN [Concomitant]
     Active Substance: IBUPROFEN
     Indication: Osteoarthritis

REACTIONS (7)
  - Hypotensive crisis [Recovered/Resolved]
  - Drug-genetic interaction [Unknown]
  - Hypotension [Recovered/Resolved]
  - Syncope [Unknown]
  - Bradycardia [Recovered/Resolved]
  - Dizziness [Unknown]
  - Hypersensitivity [Unknown]
